FAERS Safety Report 4451510-2 (Version None)
Quarter: 2004Q3

REPORT INFORMATION
  Report Type: 
  Country: None (occurrence: None)
  Receive Date: 20040915
  Receipt Date: 20040902
  Transmission Date: 20050211
  Serious: Yes (Death)
  Sender: FDA-Public Use
  Company Number: A03200403056

PATIENT
  Age: 56 Year
  Sex: Female

DRUGS (1)
  1. ELOXATIN [Suspect]
     Indication: COLORECTAL CANCER STAGE III
     Dosage: INTRAVENOUS NOS
     Route: 042
     Dates: start: 20040806, end: 20040806

REACTIONS (6)
  - CARDIO-RESPIRATORY ARREST [None]
  - FALL [None]
  - INFUSION RELATED REACTION [None]
  - LOSS OF CONSCIOUSNESS [None]
  - NAUSEA [None]
  - SKIN DISCOLOURATION [None]
